FAERS Safety Report 5808146-8 (Version None)
Quarter: 2008Q3

REPORT INFORMATION
  Report Type: 
  Country: None (occurrence: None)
  Receive Date: 20080708
  Receipt Date: 20080611
  Transmission Date: 20090109
  Serious: Yes (Death)
  Sender: FDA-Public Use
  Company Number: 2008S1010058

PATIENT
  Age: 85 Year
  Sex: Male

DRUGS (1)
  1. CITALOPRAM HYDROBROMIDE [Suspect]
     Indication: OVERDOSE

REACTIONS (3)
  - DRUG TOXICITY [None]
  - OVERDOSE [None]
  - RESPIRATORY ARREST [None]
